FAERS Safety Report 5276109-X (Version None)
Quarter: 2007Q1

REPORT INFORMATION
  Report Type: 
  Country: None (occurrence: None)
  Receive Date: 20070326
  Receipt Date: 20070315
  Transmission Date: 20070707
  Serious: Yes (Hospitalization)
  Sender: FDA-Public Use
  Company Number: 2007SE01171

PATIENT
  Age: 29351 Day
  Sex: Male

DRUGS (7)
  1. SEKO ZOK [Suspect]
     Indication: CARDIAC FAILURE
     Dosage: TOTAL DAILY DOSE: 100 MG ORAL
     Route: 048
     Dates: start: 20041119, end: 20070227
  2. RENITEC [Suspect]
     Indication: CARDIAC FAILURE
     Dosage: TOTAL DAILY DOSE: 20 MG ORAL
     Route: 048
     Dates: end: 20070227
  3. SPIRIX [Suspect]
     Indication: CARDIAC FAILURE
     Dosage: TOTAL DAILY DOSE: 25 MG ORAL
     Route: 048
     Dates: start: 20051124
  4. ROSUVASTATIN CODE NOT BROKEN [Suspect]
     Indication: CARDIAC FAILURE CHRONIC
     Route: 048
     Dates: start: 20041208
  5. ALBYL E [Concomitant]
     Indication: CARDIAC FAILURE
     Dosage: TOTAL DAILY DOSE: 75 MG ORAL
     Route: 048
  6. FURIX [Concomitant]
     Indication: CARDIAC FAILURE
     Dosage: TOTAL DAILY DOSE: 40 MG ORAL
     Route: 048
     Dates: start: 20061016
  7. SELEXID [Concomitant]
     Indication: URINARY TRACT INFECTION
     Route: 048
     Dates: start: 20061229

REACTIONS (4)
  - ATRIOVENTRICULAR BLOCK COMPLETE [None]
  - BRADYCARDIA [None]
  - HYPERKALAEMIA [None]
  - RENAL FAILURE [None]
